FAERS Safety Report 14819300 (Version 1)
Quarter: 2018Q2

REPORT INFORMATION
  Report Type: Spontaneous
  Country: US (occurrence: US)
  Receive Date: 20180427
  Receipt Date: 20180427
  Transmission Date: 20180711
  Serious: Yes (Hospitalization)
  Sender: FDA-Public Use
  Company Number: US-BAYER-2018-076208

PATIENT
  Age: 23 Year
  Sex: Male

DRUGS (2)
  1. ALEVE [Suspect]
     Active Substance: NAPROXEN SODIUM
     Indication: SPONDYLITIS
     Dosage: UNKNOWN DOSE TAKEN
     Dates: start: 20150409, end: 20180418
  2. ALEVE [Suspect]
     Active Substance: NAPROXEN SODIUM
     Indication: SPONDYLITIS
     Dosage: UNKNOWN
     Dates: start: 20180418, end: 201804

REACTIONS (1)
  - Adverse event [Not Recovered/Not Resolved]

NARRATIVE: CASE EVENT DATE: 20180418
